FAERS Safety Report 9946248 (Version 2)
Quarter: 2014Q1

REPORT INFORMATION
  Report Type: Spontaneous
  Country: US (occurrence: US)
  Receive Date: 20140303
  Receipt Date: 20140303
  Transmission Date: 20141002
  Serious: No
  Sender: FDA-Public Use
  Company Number: US-AMGEN-USASP2013087030

PATIENT
  Age: 64 Year
  Sex: Female
  Weight: 94.78 kg

DRUGS (5)
  1. ENBREL [Suspect]
     Indication: PRODUCT USED FOR UNKNOWN INDICATION
     Dosage: 50 MG, QWK
     Route: 058
     Dates: start: 20131009
  2. MTX /00113801/ [Suspect]
     Indication: RHEUMATOID ARTHRITIS
     Dosage: 2.5 MG, 4 TIMES/WK
     Route: 048
     Dates: start: 20051207
  3. PREDNISONE [Concomitant]
     Dosage: 1 MG, UNK
  4. PAXIL                              /00500401/ [Concomitant]
     Dosage: 10 MG, UNK
  5. LEVOTHYROXIN [Concomitant]
     Dosage: 50 MUG, UNK

REACTIONS (3)
  - Sinus congestion [Recovered/Resolved]
  - Cough [Recovered/Resolved]
  - Nasopharyngitis [Recovered/Resolved]
